FAERS Safety Report 9970319 (Version 1)
Quarter: 2014Q1

REPORT INFORMATION
  Report Type: Spontaneous
  Country: US (occurrence: None)
  Receive Date: 20140218
  Receipt Date: 20140218
  Transmission Date: 20141002
  Serious: Yes (Other)
  Sender: FDA-Public Use
  Company Number: OMPQ-PR-1306S-0829

PATIENT
  Age: 24 Year
  Sex: Male

DRUGS (2)
  1. OMNIPAQUE [Suspect]
     Indication: HODGKIN^S DISEASE
     Dosage: 100 ML, SINGLE DOSE, INTRAVENOUS?
     Route: 042
     Dates: start: 20130625, end: 20130625
  2. OMNIPAQUE [Suspect]
     Indication: DIAGNOSTIC PROCEDURE
     Dosage: 100 ML, SINGLE DOSE, INTRAVENOUS?
     Route: 042
     Dates: start: 20130625, end: 20130625

REACTIONS (3)
  - Sneezing [None]
  - Urticaria [None]
  - Nasal congestion [None]
